FAERS Safety Report 16071326 (Version 11)
Quarter: 2020Q3

REPORT INFORMATION
  Report Type: Spontaneous
  Country: US (occurrence: US)
  Receive Date: 20190314
  Receipt Date: 20200814
  Transmission Date: 20201102
  Serious: Yes (Other)
  Sender: FDA-Public Use
  Company Number: US-PFIZER INC-2018505951

PATIENT
  Age: 74 Year
  Sex: Female
  Weight: 64 kg

DRUGS (19)
  1. EXEMESTANE. [Concomitant]
     Active Substance: EXEMESTANE
     Indication: ANTIOESTROGEN THERAPY
  2. CENTRUM SILVER [Concomitant]
     Active Substance: MINERALS\VITAMINS
     Indication: SUPPLEMENTATION THERAPY
     Dosage: 1 DF, 1X/DAY
     Route: 048
  3. VITAMIN D2 [Concomitant]
     Active Substance: ERGOCALCIFEROL
     Indication: VITAMIN SUPPLEMENTATION
     Dosage: UNK (1.25 MG OR 50,000 UNIT)
     Route: 048
  4. XARELTO [Concomitant]
     Active Substance: RIVAROXABAN
     Indication: BLOOD DISORDER
     Dosage: 20 MG, 1X/DAY
  5. EXEMESTANE. [Concomitant]
     Active Substance: EXEMESTANE
     Indication: BREAST CANCER
     Dosage: 25 MG, DAILY
     Route: 048
  6. SUMATRIPTAN. [Concomitant]
     Active Substance: SUMATRIPTAN
     Indication: HEADACHE
  7. TUMS [Concomitant]
     Active Substance: CALCIUM CARBONATE
     Indication: MINERAL SUPPLEMENTATION
     Dosage: UNK, 1X/DAY
     Route: 048
  8. PROLIA [Concomitant]
     Active Substance: DENOSUMAB
     Dosage: CYCLIC  (INJECTION TWICE A YEAR)
     Dates: start: 201709
  9. XALKORI [Suspect]
     Active Substance: CRIZOTINIB
     Indication: LUNG NEOPLASM MALIGNANT
     Dosage: UNK
     Dates: start: 201812, end: 2019
  10. XALKORI [Suspect]
     Active Substance: CRIZOTINIB
     Dosage: 200 MG
  11. VITAMIN D [Concomitant]
     Active Substance: VITAMIN D NOS
     Indication: SUPPLEMENTATION THERAPY
     Dosage: 50000 IU, (EVERY 2 WEEKS)
     Route: 048
  12. SYNTHROID [Concomitant]
     Active Substance: LEVOTHYROXINE SODIUM
     Indication: THYROIDECTOMY
     Dosage: 0.125 UG, 1X/DAY, (ONCE DAILY FOR SIX DAYS A WEE)
     Route: 048
  13. SYNTHROID [Concomitant]
     Active Substance: LEVOTHYROXINE SODIUM
     Dosage: 125 UG, 1X/DAY
     Route: 048
  14. VITAMIN D [Concomitant]
     Active Substance: VITAMIN D NOS
     Indication: OSTEOPOROSIS
     Dosage: 1.25 MG, UNK(1 CAPSULE BY MOUTH EVERY OTHER WEEK)
     Route: 048
  15. VITAMIN D [Concomitant]
     Active Substance: VITAMIN D NOS
     Indication: MINERAL SUPPLEMENTATION
  16. VITAMIN D [Concomitant]
     Active Substance: VITAMIN D NOS
     Indication: VITAMIN SUPPLEMENTATION
  17. SUMATRIPTAN. [Concomitant]
     Active Substance: SUMATRIPTAN
     Indication: MIGRAINE
     Dosage: 50 MG, AS NEEDED
     Route: 048
  18. XALKORI [Suspect]
     Active Substance: CRIZOTINIB
     Indication: NON-SMALL CELL LUNG CANCER
     Dosage: 250 MG, 2X/DAY (ONCE IN THE MORNING AND ONCE A NIGHT)
     Route: 048
     Dates: start: 20181208
  19. PROLIA [Concomitant]
     Active Substance: DENOSUMAB
     Indication: OSTEOPOROSIS
     Dosage: UNK, CYCLIC  (ONLY EVERY 6 MONTHS)

REACTIONS (20)
  - Viral infection [Unknown]
  - Taste disorder [Unknown]
  - Non-alcoholic steatohepatitis [Unknown]
  - Product dispensing error [Unknown]
  - Protein total decreased [Not Recovered/Not Resolved]
  - Blood thyroid stimulating hormone increased [Not Recovered/Not Resolved]
  - Feeding disorder [Unknown]
  - Pulmonary thrombosis [Recovered/Resolved]
  - Off label use [Unknown]
  - Cough [Unknown]
  - Blood test abnormal [Unknown]
  - Fluid retention [Unknown]
  - Hepatic enzyme increased [Not Recovered/Not Resolved]
  - Product use in unapproved indication [Unknown]
  - Blood albumin decreased [Not Recovered/Not Resolved]
  - Vocal cord disorder [Not Recovered/Not Resolved]
  - Oesophageal irritation [Unknown]
  - Weight increased [Recovered/Resolved]
  - Paralysis [Unknown]
  - Fatigue [Unknown]

NARRATIVE: CASE EVENT DATE: 20181208
